FAERS Safety Report 21322703 (Version 5)
Quarter: 2023Q1

REPORT INFORMATION
  Report Type: Spontaneous
  Country: BR (occurrence: BR)
  Receive Date: 20220912
  Receipt Date: 20230109
  Transmission Date: 20230418
  Serious: Yes (Hospitalization, Other)
  Sender: FDA-Public Use
  Company Number: BR-AstraZeneca-2022A308601

PATIENT
  Sex: Female

DRUGS (1)
  1. SYNAGIS [Suspect]
     Active Substance: PALIVIZUMAB
     Indication: Premature baby
     Dosage: 15.0MG/KG ONCE/SINGLE ADMINISTRATION
     Dates: start: 20220826

REACTIONS (7)
  - Haemoglobin decreased [Unknown]
  - Haemorrhage [Recovered/Resolved]
  - Immune thrombocytopenia [Recovered/Resolved]
  - Thrombocytopenia [Recovered/Resolved]
  - Haematochezia [Recovered/Resolved]
  - Petechiae [Recovered/Resolved]
  - Off label use [Unknown]

NARRATIVE: CASE EVENT DATE: 20220830
